FAERS Safety Report 8538978-7 (Version None)
Quarter: 2012Q3

REPORT INFORMATION
  Report Type: 
  Country: None (occurrence: None)
  Receive Date: 20120726
  Receipt Date: 20120720
  Transmission Date: 20120928
  Serious: Yes (Hospitalization)
  Sender: FDA-Public Use
  Company Number: PHHY2012CA063319

PATIENT
  Sex: Male

DRUGS (4)
  1. CLONAZEPAM [Concomitant]
  2. NEXIUM [Concomitant]
  3. EXJADE [Suspect]
     Indication: IRON OVERLOAD
     Dosage: 2000 MG, QD
     Route: 048
  4. REVLIMID [Suspect]
     Route: 048

REACTIONS (15)
  - RENAL PAIN [None]
  - ABNORMAL SENSATION IN EYE [None]
  - MALAISE [None]
  - BLOOD IRON INCREASED [None]
  - RASH [None]
  - COMPLICATIONS OF BONE MARROW TRANSPLANT [None]
  - VISION BLURRED [None]
  - INFLUENZA [None]
  - FATIGUE [None]
  - ABDOMINAL DISCOMFORT [None]
  - DRY SKIN [None]
  - FLATULENCE [None]
  - POLLAKIURIA [None]
  - OEDEMA [None]
  - ABDOMINAL PAIN UPPER [None]
